FAERS Safety Report 10980097 (Version 2)
Quarter: 2015Q2

REPORT INFORMATION
  Report Type: Spontaneous
  Country: US (occurrence: US)
  Receive Date: 20150402
  Receipt Date: 20150630
  Transmission Date: 20150821
  Serious: Yes (Hospitalization, Other)
  Sender: FDA-Public Use
  Company Number: US-GLAXOSMITHKLINE-US2015GSK039424

PATIENT
  Age: 49 Year
  Sex: Female

DRUGS (10)
  1. XENAZINE [Suspect]
     Active Substance: TETRABENAZINE
     Indication: HUNTINGTON^S DISEASE
     Dosage: 25 MG, QID
     Route: 048
     Dates: start: 20141217
  2. LYRICA [Suspect]
     Active Substance: PREGABALIN
     Indication: PRODUCT USED FOR UNKNOWN INDICATION
     Dosage: UNK, U
     Route: 065
  3. CYMBALTA [Concomitant]
     Active Substance: DULOXETINE HYDROCHLORIDE
  4. CELEXA [Concomitant]
     Active Substance: CITALOPRAM HYDROBROMIDE
  5. XENAZINE [Suspect]
     Active Substance: TETRABENAZINE
     Dosage: 100 MG, QD
     Route: 048
     Dates: start: 20141217
  6. XENAZINE [Suspect]
     Active Substance: TETRABENAZINE
     Dosage: 12.5 MG, QD
     Route: 048
     Dates: start: 20140204
  7. NUEDEXTA [Suspect]
     Active Substance: DEXTROMETHORPHAN HYDROBROMIDE\QUINIDINE SULFATE
     Indication: ANGER
     Dosage: UNK
     Route: 065
     Dates: start: 201501
  8. NEXIUM [Suspect]
     Active Substance: ESOMEPRAZOLE MAGNESIUM
     Indication: PRODUCT USED FOR UNKNOWN INDICATION
     Dosage: UNK, U
     Route: 065
  9. WELLBUTRIN [Suspect]
     Active Substance: BUPROPION HYDROCHLORIDE
     Indication: PRODUCT USED FOR UNKNOWN INDICATION
     Dosage: UNK, U
     Route: 065
  10. ALLEGRA [Suspect]
     Active Substance: FEXOFENADINE HYDROCHLORIDE
     Indication: PRODUCT USED FOR UNKNOWN INDICATION
     Dosage: UNK, U
     Route: 065

REACTIONS (15)
  - Seizure [Unknown]
  - Dizziness [Recovering/Resolving]
  - Fine motor skill dysfunction [Unknown]
  - Nausea [Recovered/Resolved]
  - Fatigue [Unknown]
  - Anger [Recovering/Resolving]
  - Suicidal ideation [Unknown]
  - Drug dose omission [Unknown]
  - Abnormal behaviour [Recovering/Resolving]
  - Staring [Unknown]
  - Memory impairment [Unknown]
  - Somnolence [Not Recovered/Not Resolved]
  - Incorrect dose administered [Unknown]
  - Depression [Unknown]
  - Confusional state [Unknown]

NARRATIVE: CASE EVENT DATE: 20141217
